FAERS Safety Report 16466016 (Version 3)
Quarter: 2020Q4

REPORT INFORMATION
  Report Type: Spontaneous
  Country: US (occurrence: US)
  Receive Date: 20190621
  Receipt Date: 20201221
  Transmission Date: 20210113
  Serious: No
  Sender: FDA-Public Use
  Company Number: US-ACORDA-ACO_158250_2019

PATIENT
  Age: 81 Year
  Sex: Female
  Weight: 55.33 kg

DRUGS (8)
  1. CARBIDOPA LEVODOPA [Concomitant]
     Active Substance: CARBIDOPA\LEVODOPA
     Indication: PRODUCT USED FOR UNKNOWN INDICATION
     Dosage: 50/200 MG1 PILL 4X/DAY
     Route: 065
  2. CARBIDOPA LEVODOPA [Concomitant]
     Active Substance: CARBIDOPA\LEVODOPA
     Dosage: 25/100 MG 1 PILL 4X/DAY
  3. INBRIJA [Suspect]
     Active Substance: LEVODOPA
     Indication: ON AND OFF PHENOMENON
     Dosage: 84 MILLIGRAM, PRN. NOT TO EXCEED 5 DOSES A DAY
  4. ZANTAC [Concomitant]
     Active Substance: RANITIDINE HYDROCHLORIDE
     Indication: PRODUCT USED FOR UNKNOWN INDICATION
     Dosage: UNK
     Route: 065
  5. ENTACAPONE. [Suspect]
     Active Substance: ENTACAPONE
     Dosage: 0.5 MILLIGRAM, TID
     Route: 065
  6. INBRIJA [Suspect]
     Active Substance: LEVODOPA
     Indication: PARKINSON^S DISEASE
     Dosage: 42 MILLIGRAM (1 PUFF PER DAY)
     Dates: start: 20190420
  7. ENTACAPONE. [Suspect]
     Active Substance: ENTACAPONE
     Indication: PRODUCT USED FOR UNKNOWN INDICATION
     Dosage: 200 MILLIGRAM, QID
     Route: 065
  8. ISTRADEFYLLINE [Concomitant]
     Active Substance: ISTRADEFYLLINE
     Indication: PRODUCT USED FOR UNKNOWN INDICATION
     Dosage: 20 MILLIGRAM, QD
     Route: 065

REACTIONS (13)
  - Fatigue [Recovered/Resolved]
  - Device ineffective [Recovered/Resolved]
  - Prescribed underdose [Not Recovered/Not Resolved]
  - Device issue [Recovered/Resolved]
  - Device use issue [Unknown]
  - Hallucination [Unknown]
  - Incorrect dose administered by device [Unknown]
  - Device occlusion [Unknown]
  - Wrong technique in product usage process [Unknown]
  - Wrong technique in device usage process [Unknown]
  - Cough [Recovering/Resolving]
  - Weight decreased [Unknown]
  - Device difficult to use [Unknown]

NARRATIVE: CASE EVENT DATE: 20190420
